FAERS Safety Report 25218594 (Version 1)
Quarter: 2025Q2

REPORT INFORMATION
  Report Type: Spontaneous
  Country: GB (occurrence: GB)
  Receive Date: 20250421
  Receipt Date: 20250421
  Transmission Date: 20250717
  Serious: Yes (Death)
  Sender: ROCHE
  Company Number: None

PATIENT
  Sex: Male

DRUGS (2)
  1. ALECTINIB [Suspect]
     Active Substance: ALECTINIB
     Indication: Non-small cell lung cancer
     Route: 065
  2. LORLATINIB [Suspect]
     Active Substance: LORLATINIB
     Indication: Non-small cell lung cancer
     Route: 065

REACTIONS (2)
  - Malignant neoplasm progression [Fatal]
  - Non-small cell lung cancer [Fatal]
